FAERS Safety Report 24096627 (Version 3)
Quarter: 2024Q4

REPORT INFORMATION
  Report Type: Spontaneous
  Country: US (occurrence: US)
  Receive Date: 20240716
  Receipt Date: 20241025
  Transmission Date: 20250114
  Serious: Yes (Hospitalization, Other)
  Sender: PFIZER
  Company Number: US-PFIZER INC-202400213900

PATIENT
  Age: 38 Year
  Sex: Female

DRUGS (1)
  1. OXBRYTA [Suspect]
     Active Substance: VOXELOTOR
     Indication: Sickle cell disease
     Dosage: UNK
     Dates: start: 2020, end: 20241016

REACTIONS (5)
  - Sickle cell anaemia with crisis [Not Recovered/Not Resolved]
  - Pneumonia [Recovering/Resolving]
  - Pulmonary embolism [Recovering/Resolving]
  - Transfusion [Unknown]
  - Fatigue [Recovering/Resolving]

NARRATIVE: CASE EVENT DATE: 20240101
